FAERS Safety Report 13821908 (Version 1)
Quarter: 2017Q3

REPORT INFORMATION
  Report Type: Spontaneous
  Country: US (occurrence: US)
  Receive Date: 20170801
  Receipt Date: 20170801
  Transmission Date: 20171127
  Serious: Yes (Life-Threatening, Hospitalization)
  Sender: FDA-Public Use
  Company Number: US-FRESENIUS KABI-FK201706352

PATIENT
  Age: 26 Year
  Sex: Female

DRUGS (4)
  1. SODIUM BICARBONATE (MANUFACTURER UNKNOWN) [Suspect]
     Active Substance: SODIUM BICARBONATE
     Indication: DIABETIC KETOACIDOSIS
     Route: 065
  2. POTASSIUM CHLORIDE (MANUFACTURER UNKNOWN) [Suspect]
     Active Substance: POTASSIUM CHLORIDE
     Indication: PRODUCT USED FOR UNKNOWN INDICATION
     Route: 065
  3. SODIUM CHLORIDE (MANUFACTURER UNKNOWN) [Suspect]
     Active Substance: SODIUM CHLORIDE
     Indication: DIABETIC KETOACIDOSIS
     Route: 040
  4. INSULIN [Suspect]
     Active Substance: INSULIN NOS
     Indication: DIABETIC KETOACIDOSIS
     Route: 040

REACTIONS (2)
  - Respiratory failure [Recovered/Resolved]
  - Hypophosphataemia [Recovered/Resolved]
